FAERS Safety Report 18753182 (Version 1)
Quarter: 2021Q1

REPORT INFORMATION
  Report Type: Spontaneous
  Country: US (occurrence: US)
  Receive Date: 20210118
  Receipt Date: 20210118
  Transmission Date: 20210419
  Serious: No
  Sender: FDA-Public Use
  Company Number: US-TOLMAR, INC.-21US024807

PATIENT

DRUGS (5)
  1. ELIGARD [Suspect]
     Active Substance: LEUPROLIDE ACETATE
     Dosage: UNK
     Route: 065
  2. ELIGARD [Suspect]
     Active Substance: LEUPROLIDE ACETATE
     Dosage: UNK
     Route: 065
  3. ELIGARD [Suspect]
     Active Substance: LEUPROLIDE ACETATE
     Dosage: UNK
     Route: 065
  4. ELIGARD [Suspect]
     Active Substance: LEUPROLIDE ACETATE
     Indication: TRANS-SEXUALISM
     Dosage: UNK
     Route: 065
  5. ELIGARD [Suspect]
     Active Substance: LEUPROLIDE ACETATE
     Dosage: UNK
     Route: 065

REACTIONS (1)
  - Off label use [Unknown]
